FAERS Safety Report 11878793 (Version 2)
Quarter: 2016Q1

REPORT INFORMATION
  Report Type: Report from Study
  Country: NL (occurrence: NL)
  Receive Date: 20151230
  Receipt Date: 20160125
  Transmission Date: 20160526
  Serious: Yes (Death)
  Sender: FDA-Public Use
  Company Number: NL-CELGENE-NLD-2015123750

PATIENT

DRUGS (1)
  1. REVLIMID [Suspect]
     Active Substance: LENALIDOMIDE
     Indication: NON-HODGKIN^S LYMPHOMA
     Dosage: 5 MILLIGRAM
     Route: 048
     Dates: start: 20151023, end: 20151112

REACTIONS (1)
  - Non-Hodgkin^s lymphoma [Fatal]
